FAERS Safety Report 9167602 (Version 3)
Quarter: 2013Q2

REPORT INFORMATION
  Report Type: Spontaneous
  Country: GB (occurrence: GB)
  Receive Date: 20130318
  Receipt Date: 20130409
  Transmission Date: 20140414
  Serious: Yes (Other)
  Sender: FDA-Public Use
  Company Number: GB-JNJFOC-20130208409

PATIENT
  Age: 45 Year
  Sex: Male
  Weight: 72 kg

DRUGS (6)
  1. NICORETTE QUICKMIST [Suspect]
     Indication: EX-TOBACCO USER
     Route: 048
  2. NICORETTE QUICKMIST [Suspect]
     Indication: EX-TOBACCO USER
     Route: 048
  3. LOPERAMIDE [Concomitant]
     Indication: IRRITABLE BOWEL SYNDROME
     Route: 048
     Dates: start: 2009
  4. RANITIDINE [Concomitant]
     Indication: DYSPEPSIA
     Route: 048
     Dates: start: 20121120
  5. OMEPRAZOLE [Concomitant]
     Indication: DYSPEPSIA
     Route: 048
     Dates: start: 2012
  6. THYROXINE [Concomitant]
     Indication: HYPOTHYROIDISM
     Dosage: 200
     Route: 048
     Dates: start: 2005

REACTIONS (11)
  - Tobacco poisoning [Recovered/Resolved]
  - Drug ineffective [Unknown]
  - Pallor [Recovered/Resolved]
  - Hypokinesia [Recovered/Resolved]
  - Sensation of heaviness [Recovered/Resolved]
  - Palpitations [Recovered/Resolved]
  - Malaise [Recovered/Resolved]
  - Hyperhidrosis [Recovered/Resolved]
  - Dizziness [Recovered/Resolved]
  - Somnolence [Recovered/Resolved]
  - Incorrect dose administered [Unknown]
